FAERS Safety Report 13547883 (Version 2)
Quarter: 2017Q2

REPORT INFORMATION
  Report Type: Spontaneous
  Country: US (occurrence: US)
  Receive Date: 20170516
  Receipt Date: 20170517
  Transmission Date: 20170830
  Serious: No
  Sender: FDA-Public Use
  Company Number: US-BIOGEN-2017BI00398300

PATIENT
  Sex: Female

DRUGS (1)
  1. AVONEX [Suspect]
     Active Substance: INTERFERON BETA-1A
     Indication: MULTIPLE SCLEROSIS
     Route: 030
     Dates: start: 20020314, end: 2008

REACTIONS (29)
  - Abdominal distension [Unknown]
  - Swelling face [Unknown]
  - Peripheral swelling [Unknown]
  - Fatigue [Unknown]
  - Muscle spasms [Unknown]
  - Decreased appetite [Unknown]
  - Muscular weakness [Unknown]
  - Confusional state [Unknown]
  - Injection site mass [Unknown]
  - Haemorrhagic diathesis [Unknown]
  - Fluid retention [Unknown]
  - Surgery [Unknown]
  - Rash papular [Unknown]
  - Poor quality sleep [Unknown]
  - Spinal column stenosis [Unknown]
  - Anaemia [Unknown]
  - Dementia [Unknown]
  - Fear [Unknown]
  - Incision site pain [Unknown]
  - Injection site induration [Unknown]
  - Flushing [Unknown]
  - Diarrhoea [Unknown]
  - Memory impairment [Unknown]
  - Dehydration [Unknown]
  - Skin mass [Unknown]
  - Dyspepsia [Unknown]
  - Gait disturbance [Unknown]
  - Rash [Unknown]
  - Dizziness [Unknown]
